FAERS Safety Report 6337500-3 (Version None)
Quarter: 2009Q3

REPORT INFORMATION
  Report Type: 
  Country: None (occurrence: None)
  Receive Date: 20090902
  Receipt Date: 20090821
  Transmission Date: 20100115
  Serious: Yes (Hospitalization, Other)
  Sender: FDA-Public Use
  Company Number: CH-WYE-G04282509

PATIENT
  Age: 90 Year
  Sex: Female

DRUGS (12)
  1. TEMESTA [Suspect]
     Dosage: SINCE LONG TIME, 0.5 MG DAILY
     Route: 048
  2. NEXIUM [Suspect]
     Dosage: 40 MG DAILY, STARTED AT THE HOSPITAL
     Route: 048
  3. NORVASC [Suspect]
     Indication: ESSENTIAL HYPERTENSION
     Dosage: 5 MG DAILY, STARTED AT THE HOSPITAL
  4. VOLTAREN [Suspect]
     Dosage: 50 MG, FREQUENCY UNKNOWN, WITHDRAWN ON 19-JAN-2009
  5. ZANIDIP [Suspect]
     Dosage: DOSE AND FREQUENCY UNKNOWN,SWITCHED TO NORVASC
  6. COZAAR [Concomitant]
     Dates: start: 20090119
  7. SCHERIPROCT [Concomitant]
  8. ASPIRIN [Concomitant]
  9. LAXOBERON [Concomitant]
     Dates: start: 20090119
  10. PANTOZOL [Suspect]
     Dosage: DOSE AND FREQUENCY UNKNOWN,THERAPY SWITCHED TO NEXIUM
  11. DETRUSITOL [Suspect]
     Dosage: 4 MG, FREQUENCY UNKNOWN
     Route: 048
     Dates: start: 20080101
  12. DAFALGAN [Concomitant]
     Dates: start: 20090119

REACTIONS (8)
  - CONDITION AGGRAVATED [None]
  - FAECALOMA [None]
  - GASTROINTESTINAL MOTILITY DISORDER [None]
  - HAEMORRHOIDS [None]
  - HYPOALBUMINAEMIA [None]
  - INAPPROPRIATE ANTIDIURETIC HORMONE SECRETION [None]
  - MALNUTRITION [None]
  - PAIN [None]
